FAERS Safety Report 6708021-0 (Version None)
Quarter: 2010Q2

REPORT INFORMATION
  Report Type: 
  Country: None (occurrence: None)
  Receive Date: 20100428
  Receipt Date: 20100413
  Transmission Date: 20101027
  Serious: Yes (Other)
  Sender: FDA-Public Use
  Company Number: 2010-1017

PATIENT
  Age: 29 Year
  Sex: Female
  Weight: 52.6 kg

DRUGS (30)
  1. SOMATULINE DEPOT INJECTION       (SOMATULINE SR) (LANREOTIDE ACETATE) [Suspect]
     Indication: ACROMEGALY
     Dosage: 60 MG (60 MG 1 IN 1 M), PARENTERAL
     Route: 051
     Dates: start: 20100327, end: 20100327
  2. FLUDROCORTISONE ACETATE [Concomitant]
  3. SYNTHROID [Concomitant]
  4. DEPO PROVERA (MEDROXYPROGRESTERONE) [Concomitant]
  5. POTASSIUM CHLORIDE [Concomitant]
  6. VITAMIN D [Concomitant]
  7. BYSTOLIC [Concomitant]
  8. CABERGOLNE (CABERGOLINE) [Concomitant]
  9. CITRICAL (CALCIUM CARBONATE) [Concomitant]
  10. CHLORHEXIDINE GLUCONATE [Concomitant]
  11. OMEPRAZOLE (OMERPAZOLE) [Concomitant]
  12. PREDNISONE TAB [Concomitant]
  13. ZONISAMIDE [Concomitant]
  14. FELBATOL [Concomitant]
  15. LORTAB (VICODIN) [Concomitant]
  16. CYTOTEC [Concomitant]
  17. DARVON [Concomitant]
  18. REGLAN [Concomitant]
  19. PHENERGAN (PROMETHAZINE) [Concomitant]
  20. REFRESH EYE DROPS (TEARS PLUS) [Concomitant]
  21. CHLORAZEPATE (CLORAZEPATE DIPOTASSIUM) [Concomitant]
  22. CALCIUM CITRATE (CALCIUM CITRATE) [Concomitant]
  23. BENADRYL [Concomitant]
  24. OXYCODONE HCL [Concomitant]
  25. TRAMADOL HCL [Concomitant]
  26. MELOXICAM [Concomitant]
  27. CARAFATE [Concomitant]
  28. BONIVA INJ (IBANDRONATE SODIUM) [Concomitant]
  29. COLACE (DOCUSATE SODIUM) [Concomitant]
  30. AZITHROMYCIN [Suspect]
     Dosage: 250 MG 3 IN1

REACTIONS (12)
  - BLOOD GLUCOSE INCREASED [None]
  - BREATH ODOUR [None]
  - DIARRHOEA [None]
  - DRUG HYPERSENSITIVITY [None]
  - ERYTHEMA [None]
  - EYE SWELLING [None]
  - EYELID OEDEMA [None]
  - KLEBSIELLA INFECTION [None]
  - LIP SWELLING [None]
  - RASH [None]
  - SWELLING FACE [None]
  - SWOLLEN TONGUE [None]
